FAERS Safety Report 10487984 (Version 3)
Quarter: 2015Q3

REPORT INFORMATION
  Report Type: Report from Study
  Country: US (occurrence: US)
  Receive Date: 20141001
  Receipt Date: 20150911
  Transmission Date: 20151125
  Serious: Yes (Hospitalization)
  Sender: FDA-Public Use
  Company Number: US-ACTELION-A-US2014-105810

PATIENT
  Age: 79 Year
  Sex: Female

DRUGS (1)
  1. TRACLEER [Suspect]
     Active Substance: BOSENTAN
     Indication: PULMONARY ARTERIAL HYPERTENSION
     Dosage: UNK
     Route: 048

REACTIONS (2)
  - Surgery [Unknown]
  - Back pain [Unknown]
